FAERS Safety Report 11272420 (Version 2)
Quarter: 2015Q3

REPORT INFORMATION
  Report Type: Spontaneous
  Country: US (occurrence: None)
  Receive Date: 20150713
  Receipt Date: 20150727
  Transmission Date: 20151125
  Serious: Yes (Hospitalization)
  Sender: FDA-Public Use
  Company Number: KAD201507-002138

PATIENT
  Age: 45 Year
  Sex: Male

DRUGS (10)
  1. RITONAVIR (RITONAVIR) [Suspect]
     Active Substance: RITONAVIR
     Indication: HIV INFECTION
     Route: 048
     Dates: end: 201506
  2. JANUVIA [Concomitant]
     Active Substance: SITAGLIPTIN PHOSPHATE
  3. RISPERDAL [Concomitant]
     Active Substance: RISPERIDONE
  4. DARUNAVIR [Concomitant]
     Active Substance: DARUNAVIR
  5. TRAZODONE [Concomitant]
     Active Substance: TRAZODONE HYDROCHLORIDE
  6. RIBAVIRIN (RIBAVIRIN) [Suspect]
     Active Substance: RIBAVIRIN
     Indication: HEPATITIS C
     Route: 048
     Dates: start: 201506
  7. TRUVADA [Concomitant]
     Active Substance: EMTRICITABINE\TENOFOVIR DISOPROXIL FUMARATE
  8. CELEXA [Concomitant]
     Active Substance: CITALOPRAM HYDROBROMIDE
  9. VIEKIRA PAK [Suspect]
     Active Substance: DASABUVIR\OMBITASVIR\PARITAPREVIR\RITONAVIR
     Indication: HEPATITIS C
     Route: 048
     Dates: start: 201506
  10. IMIPRAMINE [Concomitant]
     Active Substance: IMIPRAMINE

REACTIONS (3)
  - Drug interaction [None]
  - Fatigue [None]
  - Syncope [None]

NARRATIVE: CASE EVENT DATE: 201506
